FAERS Safety Report 9705230 (Version 6)
Quarter: 2015Q3

REPORT INFORMATION
  Report Type: Spontaneous
  Country: US (occurrence: US)
  Receive Date: 20131122
  Receipt Date: 20150814
  Transmission Date: 20151125
  Serious: Yes (Life-Threatening, Hospitalization, Other)
  Sender: FDA-Public Use
  Company Number: US-BAYER-2013-140553

PATIENT
  Age: 39 Year
  Sex: Female
  Weight: 60.77 kg

DRUGS (10)
  1. REGLAN [Concomitant]
     Active Substance: METOCLOPRAMIDE HYDROCHLORIDE
     Indication: ABDOMINAL DISTENSION
     Dosage: UNK
     Dates: start: 2013
  2. LABETALOL [Concomitant]
     Active Substance: LABETALOL\LABETALOL HYDROCHLORIDE
     Indication: HYPERTENSION
     Dosage: UNK
     Dates: start: 2013
  3. LEVOTHYROXINE. [Concomitant]
     Active Substance: LEVOTHYROXINE
  4. METFORMIN [Concomitant]
     Active Substance: METFORMIN HYDROCHLORIDE
  5. LANTUS [Concomitant]
     Active Substance: INSULIN GLARGINE
     Indication: DIABETES MELLITUS
     Dosage: UNK
     Dates: start: 2013
  6. PREMARIN [Concomitant]
     Active Substance: ESTROGENS, CONJUGATED
  7. SYNTHROID [Concomitant]
     Active Substance: LEVOTHYROXINE SODIUM
     Indication: BASEDOW^S DISEASE
     Dosage: UNK
     Dates: start: 2008
  8. NOVOLOG [Concomitant]
     Active Substance: INSULIN ASPART
     Indication: DIABETES MELLITUS
     Dosage: UNK
     Dates: start: 2013
  9. HUMALOG [Concomitant]
     Active Substance: INSULIN LISPRO
     Indication: DIABETES MELLITUS
     Dosage: UNK
     Dates: start: 2013
  10. MIRENA [Suspect]
     Active Substance: LEVONORGESTREL
     Indication: CONTRACEPTION
     Dosage: 20 MCG/24HR, CONT
     Route: 015
     Dates: start: 20111020

REACTIONS (20)
  - Device dislocation [None]
  - Device defective [None]
  - Genital haemorrhage [Not Recovered/Not Resolved]
  - Gestational diabetes [None]
  - Pregnancy with contraceptive device [None]
  - Gestational hypertension [None]
  - Postpartum haemorrhage [None]
  - Haemorrhage in pregnancy [None]
  - Anhedonia [None]
  - Seizure [None]
  - Abdominal pain lower [None]
  - Anxiety [None]
  - Ovarian cyst [None]
  - Venous injury [None]
  - Drug ineffective [None]
  - Vanishing twin syndrome [None]
  - Injury [None]
  - Emotional distress [None]
  - General physical health deterioration [None]
  - Premature delivery [None]

NARRATIVE: CASE EVENT DATE: 2013
